FAERS Safety Report 7820847-9 (Version None)
Quarter: 2011Q4

REPORT INFORMATION
  Report Type: 
  Country: None (occurrence: None)
  Receive Date: 20111018
  Receipt Date: 20111010
  Transmission Date: 20120403
  Serious: Yes (Other)
  Sender: FDA-Public Use
  Company Number: PL-TEVA-305164ISR

PATIENT
  Age: 28 Year
  Sex: Male

DRUGS (4)
  1. LEVOTHYROXINE SODIUM [Interacting]
     Dosage: 300 MICROGRAM;
  2. METFORMIN HYDROCHLORIDE [Suspect]
     Indication: TYPE 2 DIABETES MELLITUS
     Dosage: 500 MILLIGRAM;
  3. LEVOTHYROXINE SODIUM [Interacting]
     Indication: HYPOTHYROIDISM
     Dosage: 500 MICROGRAM;
  4. METFORMIN HYDROCHLORIDE [Interacting]
     Dosage: 2.55 GRAM;

REACTIONS (2)
  - HYPOTHYROIDISM [None]
  - HYPERTHYROIDISM [None]
